FAERS Safety Report 7319008-1 (Version None)
Quarter: 2011Q1

REPORT INFORMATION
  Report Type: 
  Country: None (occurrence: None)
  Receive Date: 20110228
  Receipt Date: 20110216
  Transmission Date: 20110831
  Serious: Yes (Other)
  Sender: FDA-Public Use
  Company Number: US-JNJFOC-20110206464

PATIENT
  Age: 59 Year
  Sex: Male

DRUGS (1)
  1. NICORETTE [Suspect]
     Indication: SMOKING CESSATION THERAPY
     Dosage: 80 PIECES A WEEK
     Route: 048

REACTIONS (4)
  - OROPHARYNGEAL BLISTERING [None]
  - APHTHOUS STOMATITIS [None]
  - INTENTIONAL DRUG MISUSE [None]
  - THERMAL BURN [None]
